FAERS Safety Report 21968348 (Version 3)
Quarter: 2023Q2

REPORT INFORMATION
  Report Type: Spontaneous
  Country: US (occurrence: US)
  Receive Date: 20230208
  Receipt Date: 20230410
  Transmission Date: 20230722
  Serious: Yes (Life-Threatening)
  Sender: FDA-Public Use
  Company Number: US-PFIZER INC-202300051883

PATIENT
  Age: 71 Year
  Sex: Female
  Weight: 64.1 kg

DRUGS (5)
  1. PACLITAXEL [Suspect]
     Active Substance: PACLITAXEL
     Indication: Ovarian cancer
     Dosage: 300 MG
  2. PACLITAXEL [Suspect]
     Active Substance: PACLITAXEL
     Dosage: 240 MG, CYCLIC (EVERY 21 DAYS)
     Route: 042
     Dates: start: 20221004, end: 20221004
  3. PACLITAXEL [Suspect]
     Active Substance: PACLITAXEL
     Dosage: 240 MG, CYCLIC (EVERY 21 DAYS)
     Route: 042
     Dates: start: 20221004, end: 20221004
  4. DEXAMETHASONE [Concomitant]
     Active Substance: DEXAMETHASONE
     Indication: Premedication
     Dosage: 10 MG
     Route: 042
  5. BENADRYL [Concomitant]
     Active Substance: DIPHENHYDRAMINE HYDROCHLORIDE
     Indication: Premedication
     Dosage: UNK

REACTIONS (6)
  - Lethargy [Recovered/Resolved]
  - Hypotension [Recovered/Resolved]
  - Syncope [Recovered/Resolved]
  - Flushing [Recovered/Resolved]
  - Dyspnoea [Recovered/Resolved]
  - Tachycardia [Recovered/Resolved]

NARRATIVE: CASE EVENT DATE: 20221004
